FAERS Safety Report 21231088 (Version 1)
Quarter: 2022Q3

REPORT INFORMATION
  Report Type: Spontaneous
  Country: US (occurrence: US)
  Receive Date: 20220819
  Receipt Date: 20220819
  Transmission Date: 20221027
  Serious: Yes (Life-Threatening, Other)
  Sender: FDA-Public Use
  Company Number: US-drreddys-LIT/USA/22/0153529

PATIENT
  Age: 58 Year
  Sex: Female

DRUGS (17)
  1. DOCETAXEL [Suspect]
     Active Substance: DOCETAXEL
     Indication: Invasive lobular breast carcinoma
  2. CAPECITABINE [Suspect]
     Active Substance: CAPECITABINE
     Indication: Invasive lobular breast carcinoma
  3. FULVESTRANT [Suspect]
     Active Substance: FULVESTRANT
     Indication: Invasive lobular breast carcinoma
  4. TRASTUZUMAB [Suspect]
     Active Substance: TRASTUZUMAB
     Indication: Invasive lobular breast carcinoma
  5. TRASTUZUMAB [Suspect]
     Active Substance: TRASTUZUMAB
  6. PERTUZUMAB [Suspect]
     Active Substance: PERTUZUMAB
     Indication: Invasive lobular breast carcinoma
  7. LETROZOLE [Concomitant]
     Active Substance: LETROZOLE
     Indication: Product used for unknown indication
     Dates: start: 201404
  8. VINORELBINE [Concomitant]
     Active Substance: VINORELBINE TARTRATE
     Indication: Invasive lobular breast carcinoma
  9. CAPECITABINE [Concomitant]
     Active Substance: CAPECITABINE
     Indication: Invasive lobular breast carcinoma
     Dosage: AT 58 YEARS OF AGE
  10. CAPECITABINE [Concomitant]
     Active Substance: CAPECITABINE
     Dates: start: 202009
  11. FULVESTRANT [Concomitant]
     Active Substance: FULVESTRANT
     Indication: Invasive lobular breast carcinoma
  12. PALBOCICLIB [Concomitant]
     Active Substance: PALBOCICLIB
     Indication: Invasive lobular breast carcinoma
  13. NERATINIB [Concomitant]
     Active Substance: NERATINIB
     Indication: Invasive lobular breast carcinoma
  14. NERATINIB [Concomitant]
     Active Substance: NERATINIB
  15. ERIBULIN [Concomitant]
     Active Substance: ERIBULIN
     Indication: Invasive lobular breast carcinoma
  16. TRASTUZUMAB DERUXTECAN [Concomitant]
     Active Substance: TRASTUZUMAB DERUXTECAN
     Indication: Invasive lobular breast carcinoma
     Dates: start: 202005
  17. TUCATINIB [Concomitant]
     Active Substance: TUCATINIB
     Indication: Invasive lobular breast carcinoma
     Dates: start: 202009

REACTIONS (2)
  - Drug ineffective [Unknown]
  - Breast cancer [Unknown]
